FAERS Safety Report 4466791-9 (Version None)
Quarter: 2004Q3

REPORT INFORMATION
  Report Type: 
  Country: None (occurrence: None)
  Receive Date: 20040930
  Receipt Date: 20040922
  Transmission Date: 20050211
  Serious: Yes (Disabling)
  Sender: FDA-Public Use
  Company Number: TPA2004A01147

PATIENT
  Age: 53 Year
  Sex: Female

DRUGS (6)
  1. ACTOS [Suspect]
     Indication: DIABETES MELLITUS NON-INSULIN-DEPENDENT
     Dosage: 30 MG, 1 IN 1 D, PER ORAL (SEE IMAGE)
     Route: 048
     Dates: end: 20040722
  2. AMARYL [Suspect]
     Indication: DIABETES MELLITUS NON-INSULIN-DEPENDENT
     Dosage: 2 MG, 1 IN 1 D; PER ORAL
     Route: 048
  3. GLUCOPHAGE [Suspect]
     Indication: DIABETES MELLITUS NON-INSULIN-DEPENDENT
     Dosage: 850 MG, 2 IN 1 D; PER ORAL
     Route: 048
  4. ACCUPRIL (QUINAPRIL HYDROCHLORIDE) (40 MILLIGRAM) [Concomitant]
  5. NORVASC (AMLODIPINE) (5 MILLIGRAM) [Concomitant]
  6. HCTZ (HYDROCHLOROTHIAZIDE) (12.5 MILLIGRAM) [Concomitant]

REACTIONS (6)
  - BLINDNESS [None]
  - BLOOD GLUCOSE DECREASED [None]
  - DIZZINESS [None]
  - EYELID BLEEDING [None]
  - HAEMORRHAGE [None]
  - TREMOR [None]
